FAERS Safety Report 7491112-7 (Version None)
Quarter: 2011Q2

REPORT INFORMATION
  Report Type: 
  Country: None (occurrence: None)
  Receive Date: 20110519
  Receipt Date: 20110505
  Transmission Date: 20111010
  Serious: Yes (Other)
  Sender: FDA-Public Use
  Company Number: US-JNJFOC-20101006544

PATIENT
  Sex: Female
  Weight: 97.98 kg

DRUGS (8)
  1. REMICADE [Suspect]
     Indication: RHEUMATOID ARTHRITIS
     Route: 042
  2. LEVOXYL [Concomitant]
  3. PERCOCET [Concomitant]
     Route: 048
  4. PREDNISONE [Concomitant]
     Route: 048
  5. UNKNOWN MEDICATION [Concomitant]
  6. TYLENOL EXTRA STRENGTH [Concomitant]
     Route: 048
  7. PROTONIX [Concomitant]
     Route: 048
  8. FENTANYL [Concomitant]
     Indication: PAIN
     Dosage: AS NEEDED
     Route: 061

REACTIONS (3)
  - DRUG EXPOSURE DURING PREGNANCY [None]
  - CAESAREAN SECTION [None]
  - POLYHYDRAMNIOS [None]
